FAERS Safety Report 16179672 (Version 1)
Quarter: 2019Q2

REPORT INFORMATION
  Report Type: Spontaneous
  Country: US (occurrence: US)
  Receive Date: 20190307
  Receipt Date: 20190307
  Transmission Date: 20190711
  Serious: Yes (Other)
  Sender: FDA-Public Use
  Company Number: None

PATIENT
  Age: 61 Year
  Sex: Female

DRUGS (1)
  1. KLONOPIN [Suspect]
     Active Substance: CLONAZEPAM
     Indication: SOCIAL ANXIETY DISORDER
     Dosage: ?          OTHER DOSE:0.5MG;OTHER FREQUENCY:2.5 DAILY;?
     Route: 048
     Dates: start: 20050228

REACTIONS (4)
  - Crying [None]
  - Depression [None]
  - Fatigue [None]
  - Anxiety [None]

NARRATIVE: CASE EVENT DATE: 20150115
